FAERS Safety Report 5291964-5 (Version None)
Quarter: 2007Q2

REPORT INFORMATION
  Report Type: 
  Country: None (occurrence: None)
  Receive Date: 20070406
  Receipt Date: 20070406
  Transmission Date: 20071010
  Serious: Yes (Other)
  Sender: FDA-Public Use
  Company Number: None

PATIENT
  Age: 62 Year
  Sex: Male
  Weight: 115.2 kg

DRUGS (1)
  1. LISINOPRIL [Suspect]

REACTIONS (1)
  - RENAL FAILURE [None]
